FAERS Safety Report 4853277-2 (Version None)
Quarter: 2005Q4

REPORT INFORMATION
  Report Type: 
  Country: None (occurrence: None)
  Receive Date: 20051214
  Receipt Date: 20051102
  Transmission Date: 20060501
  Serious: Yes (Other)
  Sender: FDA-Public Use
  Company Number: US-GLAXOSMITHKLINE-A0580774A

PATIENT
  Age: 57 Year
  Sex: Male
  Weight: 68.2 kg

DRUGS (3)
  1. WELLBUTRIN XL [Suspect]
     Indication: DEPRESSION
     Dosage: 150MG SINGLE DOSE
     Route: 048
     Dates: start: 20051027, end: 20051027
  2. LAMICTAL [Suspect]
     Indication: BIPOLAR DISORDER
     Dosage: 200MG AT NIGHT
     Route: 048
  3. SEROQUEL [Concomitant]
     Indication: INSOMNIA
     Dosage: 100MG AT NIGHT
     Route: 048

REACTIONS (4)
  - ABNORMAL BEHAVIOUR [None]
  - AGGRESSION [None]
  - AMNESIA [None]
  - PSYCHOTIC DISORDER [None]
